FAERS Safety Report 6851905-3 (Version None)
Quarter: 2010Q3

REPORT INFORMATION
  Report Type: 
  Country: None (occurrence: None)
  Receive Date: 20100717
  Receipt Date: 20071102
  Transmission Date: 20110219
  Serious: No
  Sender: FDA-Public Use
  Company Number: US-PFIZER INC-2007093188

PATIENT
  Sex: Female
  Weight: 68.2 kg

DRUGS (10)
  1. CHANTIX [Suspect]
     Indication: SMOKING CESSATION THERAPY
     Dates: start: 20070601, end: 20070101
  2. TEMAZEPAM [Concomitant]
  3. PRAVASTATIN [Concomitant]
  4. MORPHINE [Concomitant]
  5. TRAZODONE HYDROCHLORIDE [Concomitant]
  6. XANAX [Concomitant]
  7. VENLAFAXINE HYDROCHLORIDE [Concomitant]
  8. SOMA [Concomitant]
  9. HUMIRA [Concomitant]
  10. EVOXAC [Concomitant]

REACTIONS (1)
  - URTICARIA [None]
